FAERS Safety Report 13397057 (Version 1)
Quarter: 2017Q2

REPORT INFORMATION
  Report Type: Spontaneous
  Country: GB (occurrence: GB)
  Receive Date: 20170403
  Receipt Date: 20170403
  Transmission Date: 20170830
  Serious: Yes (Other)
  Sender: FDA-Public Use
  Company Number: GB-TEVA-753871ACC

PATIENT
  Age: 27 Year
  Sex: Female
  Weight: 100 kg

DRUGS (4)
  1. VERAPAMIL [Suspect]
     Active Substance: VERAPAMIL HYDROCHLORIDE
     Indication: ATRIAL FIBRILLATION
     Route: 048
     Dates: start: 20170209, end: 20170304
  2. PARACETAMOL [Concomitant]
     Active Substance: ACETAMINOPHEN
  3. FLECAINIDE [Concomitant]
     Active Substance: FLECAINIDE
  4. BISOPROLOL FUMARATE. [Concomitant]
     Active Substance: BISOPROLOL FUMARATE

REACTIONS (7)
  - Breast pain [Recovering/Resolving]
  - Hypoaesthesia [Recovering/Resolving]
  - Breast swelling [Unknown]
  - Eye pruritus [Recovering/Resolving]
  - Vision blurred [Recovering/Resolving]
  - Pollakiuria [Recovering/Resolving]
  - Dysgeusia [Not Recovered/Not Resolved]

NARRATIVE: CASE EVENT DATE: 20170209
